FAERS Safety Report 5011179-5 (Version None)
Quarter: 2006Q2

REPORT INFORMATION
  Report Type: 
  Country: None (occurrence: None)
  Receive Date: 20060523
  Receipt Date: 20060505
  Transmission Date: 20061013
  Serious: Yes (Hospitalization)
  Sender: FDA-Public Use
  Company Number: US159771

PATIENT
  Age: 68 Year
  Sex: Male
  Weight: 62 kg

DRUGS (4)
  1. ENBREL [Suspect]
     Indication: RHEUMATOID ARTHRITIS
     Dosage: 25 MG, 2 IN 1 WEEKS, SC
     Route: 058
     Dates: start: 20050401, end: 20050715
  2. ALENDRONATE SODIUM (ALENDRONATE DOSIUM) [Concomitant]
  3. DICLOFENAC SODIUM, MISOPROSTOL (DICLOFENAC SODIUM MISOPROSTOL) [Concomitant]
  4. DIHYDROCODEINE BITARTRATE, PARACETAMOL (DIDHYDROCODEINE BITARTRATE, PA [Concomitant]

REACTIONS (10)
  - ARTHRALGIA [None]
  - CACHEXIA [None]
  - COUGH [None]
  - FATIGUE [None]
  - LYMPHADENOPATHY MEDIASTINAL [None]
  - NIGHT SWEATS [None]
  - PALLOR [None]
  - ROSAI-DORFMAN SYNDROME [None]
  - VOCAL CORD PARESIS [None]
  - WEIGHT DECREASED [None]
